FAERS Safety Report 8019327-X (Version None)
Quarter: 2012Q1

REPORT INFORMATION
  Report Type: 
  Country: None (occurrence: None)
  Receive Date: 20120103
  Receipt Date: 20111222
  Transmission Date: 20120608
  Serious: Yes (Life-Threatening, Hospitalization, Other)
  Sender: FDA-Public Use
  Company Number: US-ACTELION-A-US2011-58580

PATIENT

DRUGS (17)
  1. ALENDRONATE SODIUM [Concomitant]
  2. SILDENAFIL [Concomitant]
  3. RESTASIS [Concomitant]
  4. ADCIRCA [Concomitant]
  5. NIFEDIPINE [Concomitant]
  6. ALLEGRA [Concomitant]
  7. VITAMIN D [Concomitant]
  8. REFRESH TEARS [Concomitant]
  9. TRACLEER [Suspect]
     Indication: PULMONARY ARTERIAL HYPERTENSION
     Dosage: 125 MG, BID
     Route: 048
     Dates: start: 20100727
  10. AVAPRO [Concomitant]
  11. SIMVASTATIN [Concomitant]
  12. HYOMAX [Concomitant]
  13. IBUPROFEN [Concomitant]
  14. CALCIUM CHANNEL BLOCKERS [Concomitant]
  15. OMEPRAZOLE [Concomitant]
  16. LOSARTAN POTASSIUM [Concomitant]
  17. CALCIUM ACETATE [Concomitant]

REACTIONS (3)
  - PNEUMONIA [None]
  - ATRIAL FLUTTER [None]
  - PULMONARY ARTERIAL HYPERTENSION [None]
